FAERS Safety Report 9767939 (Version 2)
Quarter: 2014Q1

REPORT INFORMATION
  Report Type: Spontaneous
  Country: US (occurrence: US)
  Receive Date: 20131217
  Receipt Date: 20140219
  Transmission Date: 20141002
  Serious: Yes (Other)
  Sender: FDA-Public Use
  Company Number: US-GLAXOSMITHKLINE-A1052858A

PATIENT
  Age: 54 Year
  Sex: Female

DRUGS (2)
  1. BENLYSTA [Suspect]
     Indication: SYSTEMIC LUPUS ERYTHEMATOSUS
     Route: 042
     Dates: start: 2012
  2. PLAQUENIL [Concomitant]

REACTIONS (22)
  - Systemic lupus erythematosus [Unknown]
  - Tremor [Unknown]
  - Asthenia [Unknown]
  - Feeling abnormal [Unknown]
  - Pyrexia [Not Recovered/Not Resolved]
  - Muscular weakness [Unknown]
  - Nausea [Not Recovered/Not Resolved]
  - Butterfly rash [Not Recovered/Not Resolved]
  - Headache [Not Recovered/Not Resolved]
  - Pain in jaw [Not Recovered/Not Resolved]
  - Oropharyngeal pain [Unknown]
  - Dysphonia [Unknown]
  - Impaired work ability [Unknown]
  - Dyspnoea [Unknown]
  - Fatigue [Unknown]
  - Crying [Unknown]
  - Insomnia [Unknown]
  - Aphonia [Unknown]
  - Mastication disorder [Not Recovered/Not Resolved]
  - Joint swelling [Not Recovered/Not Resolved]
  - Arthritis [Not Recovered/Not Resolved]
  - Drug administration error [Unknown]
